FAERS Safety Report 12329352 (Version 2)
Quarter: 2016Q3

REPORT INFORMATION
  Report Type: Report from Study
  Country: US (occurrence: US)
  Receive Date: 20160503
  Receipt Date: 20160804
  Transmission Date: 20161109
  Serious: Yes (Death, Hospitalization)
  Sender: FDA-Public Use
  Company Number: US-CELGENEUS-USA-2016047813

PATIENT
  Age: 68 Year
  Sex: Male
  Weight: 99.43 kg

DRUGS (3)
  1. REVLIMID [Suspect]
     Active Substance: LENALIDOMIDE
     Indication: PLASMA CELL MYELOMA
     Route: 048
     Dates: start: 20140311, end: 20140524
  2. REVLIMID [Suspect]
     Active Substance: LENALIDOMIDE
     Route: 048
     Dates: start: 20141110
  3. KYPROLIS [Suspect]
     Active Substance: CARFILZOMIB
     Indication: PLASMA CELL MYELOMA
     Dosage: 120 MILLIGRAM
     Route: 041
     Dates: start: 20160502, end: 20160503

REACTIONS (1)
  - Plasmacytoma [Fatal]

NARRATIVE: CASE EVENT DATE: 20160529
